FAERS Safety Report 7474557-0 (Version None)
Quarter: 2011Q2

REPORT INFORMATION
  Report Type: 
  Country: None (occurrence: None)
  Receive Date: 20110503
  Receipt Date: 20110418
  Transmission Date: 20111010
  Serious: Yes (Death)
  Sender: FDA-Public Use
  Company Number: 2011-1201

PATIENT
  Age: 61 Year
  Sex: Male

DRUGS (6)
  1. APO-GO PEN (APO-GO) (APOMORPHINE HYDROCHLORIDE) (APOMORPHIMNE  HYDROCH [Suspect]
     Indication: PARKINSON'S DISEASE
     Dosage: 2-3 TIMES DAILY, SUBCUTANEOUS
     Route: 058
     Dates: start: 20070501
  2. STALEVO (STALEVO) [Concomitant]
  3. AZILECT [Concomitant]
  4. PRAMIPEXOLE DIHYDROCHLORIDE [Concomitant]
  5. MADOPAR (MADOPAR /00349201/) [Concomitant]
  6. MOTILIUM [Concomitant]

REACTIONS (2)
  - ASPHYXIA [None]
  - COMPLETED SUICIDE [None]
